FAERS Safety Report 13071981 (Version 10)
Quarter: 2019Q1

REPORT INFORMATION
  Report Type: Report from Study
  Country: IL (occurrence: IL)
  Receive Date: 20161229
  Receipt Date: 20190121
  Transmission Date: 20190417
  Serious: No
  Sender: FDA-Public Use
  Company Number: IL-JNJFOC-20160807847

PATIENT
  Age: 63 Year
  Sex: Male

DRUGS (2)
  1. STELARA [Suspect]
     Active Substance: USTEKINUMAB
     Indication: PSORIASIS
     Route: 058
  2. STELARA [Suspect]
     Active Substance: USTEKINUMAB
     Indication: PSORIASIS
     Route: 058
     Dates: start: 20151221

REACTIONS (6)
  - Hepatic function abnormal [Recovered/Resolved]
  - Rash pruritic [Recovering/Resolving]
  - Rash generalised [Not Recovered/Not Resolved]
  - Inappropriate schedule of product administration [Unknown]
  - Pyrexia [Recovered/Resolved]
  - Rhinorrhoea [Recovered/Resolved]

NARRATIVE: CASE EVENT DATE: 201609
